FAERS Safety Report 5570202-X (Version None)
Quarter: 2007Q4

REPORT INFORMATION
  Report Type: 
  Country: None (occurrence: None)
  Receive Date: 20071217
  Receipt Date: 20071212
  Transmission Date: 20080405
  Serious: Yes (Life-Threatening, Other)
  Sender: FDA-Public Use
  Company Number: 2007SP024792

PATIENT
  Age: 74 Year
  Sex: Female
  Weight: 48 kg

DRUGS (11)
  1. TEMODAL [Suspect]
     Indication: ANAPLASTIC ASTROCYTOMA
     Dosage: SEE IMAGE
     Route: 048
     Dates: start: 20070328, end: 20070401
  2. TEMODAL [Suspect]
     Indication: ANAPLASTIC ASTROCYTOMA
     Dosage: SEE IMAGE
     Route: 048
     Dates: start: 20070425, end: 20070429
  3. TEMODAL [Suspect]
     Indication: ANAPLASTIC ASTROCYTOMA
     Dosage: SEE IMAGE
     Route: 048
     Dates: start: 20070523, end: 20070527
  4. TEMODAL [Suspect]
     Indication: ANAPLASTIC ASTROCYTOMA
     Dosage: SEE IMAGE
     Route: 048
     Dates: start: 20070620, end: 20070624
  5. TEMODAL [Suspect]
     Indication: ANAPLASTIC ASTROCYTOMA
     Dosage: SEE IMAGE
     Route: 048
     Dates: start: 20070718, end: 20070722
  6. TEMODAL [Suspect]
     Indication: ANAPLASTIC ASTROCYTOMA
     Dosage: SEE IMAGE
     Route: 048
     Dates: start: 20070815, end: 20070819
  7. BAKTAR (BACTRIM 000086101/) [Suspect]
     Indication: ANTIFUNGAL PROPHYLAXIS
     Dosage: PO
     Route: 048
     Dates: start: 20070329, end: 20071009
  8. ZONISAMIDE [Concomitant]
  9. RABEPRAZOLE SODIUM [Concomitant]
  10. PREDNISOLONE [Concomitant]
  11. DEPAS [Concomitant]

REACTIONS (5)
  - BONE MARROW FAILURE [None]
  - DEPRESSION [None]
  - METASTASES TO CENTRAL NERVOUS SYSTEM [None]
  - NAUSEA [None]
  - REFUSAL OF TREATMENT BY PATIENT [None]
